FAERS Safety Report 5457437-1 (Version None)
Quarter: 2007Q3

REPORT INFORMATION
  Report Type: 
  Country: None (occurrence: None)
  Receive Date: 20070918
  Receipt Date: 20070228
  Transmission Date: 20080115
  Serious: Yes (Hospitalization, Disabling)
  Sender: FDA-Public Use
  Company Number: US-ASTRAZENECA-2007UW03962

PATIENT
  Age: 44 Year
  Sex: Male
  Weight: 78.6 kg

DRUGS (5)
  1. SEROQUEL [Suspect]
     Indication: BIPOLAR DISORDER
     Route: 048
     Dates: start: 20070129
  2. SEROQUEL [Suspect]
     Dosage: 100 MG QAM AND 700 MG QHS
     Route: 048
     Dates: end: 20070208
  3. FLEXERIL [Concomitant]
     Route: 048
  4. CHLORAL HYDRATE [Concomitant]
     Indication: SLEEP DISORDER
     Route: 048
  5. ULTRAM [Concomitant]
     Route: 048

REACTIONS (6)
  - AGITATION [None]
  - COGNITIVE DISORDER [None]
  - CONFUSIONAL STATE [None]
  - EXTRAPYRAMIDAL DISORDER [None]
  - HALLUCINATIONS, MIXED [None]
  - PARANOIA [None]
